FAERS Safety Report 24201111 (Version 4)
Quarter: 2025Q1

REPORT INFORMATION
  Report Type: Spontaneous
  Country: JP (occurrence: JP)
  Receive Date: 20240812
  Receipt Date: 20250227
  Transmission Date: 20250409
  Serious: Yes (Other)
  Sender: ROCHE
  Company Number: JP-CHUGAI-2024027361

PATIENT
  Age: 81 Year
  Sex: Female

DRUGS (16)
  1. ACTEMRA [Suspect]
     Active Substance: TOCILIZUMAB
     Indication: Cytokine release syndrome
     Route: 065
  2. TISAGENLECLEUCEL [Suspect]
     Active Substance: TISAGENLECLEUCEL
     Indication: Follicular lymphoma
     Route: 042
  3. OBINUTUZUMAB [Concomitant]
     Active Substance: OBINUTUZUMAB
  4. BENDAMUSTINE [Concomitant]
     Active Substance: BENDAMUSTINE
  5. RITUXIMAB [Concomitant]
     Active Substance: RITUXIMAB
  6. LENALIDOMIDE [Concomitant]
     Active Substance: LENALIDOMIDE
  7. CYCLOPHOSPHAMIDE [Concomitant]
     Active Substance: CYCLOPHOSPHAMIDE
  8. FLUDARABINE [Concomitant]
     Active Substance: FLUDARABINE PHOSPHATE
  9. LEVETIRACETAM [Concomitant]
     Active Substance: LEVETIRACETAM
  10. POSACONAZOLE [Concomitant]
     Active Substance: POSACONAZOLE
  11. ACYCLOVIR [Concomitant]
     Active Substance: ACYCLOVIR
  12. LANSOPRAZOLE [Concomitant]
     Active Substance: LANSOPRAZOLE
  13. FEBUXOSTAT [Concomitant]
     Active Substance: FEBUXOSTAT
  14. APIXABAN [Concomitant]
     Active Substance: APIXABAN
  15. ROSUVASTATIN CALCIUM [Concomitant]
     Active Substance: ROSUVASTATIN CALCIUM
  16. ALFACALCIDOL [Concomitant]
     Active Substance: ALFACALCIDOL

REACTIONS (3)
  - Duodenal ulcer haemorrhage [Unknown]
  - Small intestinal perforation [Unknown]
  - Gastric ulcer [Unknown]
